FAERS Safety Report 4777287-9 (Version None)
Quarter: 2005Q3

REPORT INFORMATION
  Report Type: 
  Country: None (occurrence: None)
  Receive Date: 20050921
  Receipt Date: 20050906
  Transmission Date: 20060218
  Serious: Yes (Hospitalization)
  Sender: FDA-Public Use
  Company Number: USA0507103042

PATIENT
  Age: 50 Year
  Sex: Female

DRUGS (2)
  1. ZYPREXA [Suspect]
     Indication: AGITATION
     Dosage: 10 MG
  2. PROZAC [Concomitant]

REACTIONS (5)
  - ASPIRATION [None]
  - CYANOSIS [None]
  - INCREASED UPPER AIRWAY SECRETION [None]
  - RESPIRATORY DEPRESSION [None]
  - SEDATION [None]
